FAERS Safety Report 7356887 (Version 25)
Quarter: 2014Q2

REPORT INFORMATION
  Report Type: Spontaneous
  Country: US (occurrence: US)
  Receive Date: 20100416
  Receipt Date: 20140425
  Transmission Date: 20141212
  Serious: Yes (Other)
  Sender: FDA-Public Use
  Company Number: PHEH2010US03398

PATIENT
  Sex: Female
  Weight: 83.45 kg

DRUGS (23)
  1. ZOMETA [Suspect]
     Indication: PLASMA CELL MYELOMA
     Dosage: 4 MG, QMO
     Route: 042
     Dates: start: 200705, end: 200901
  2. COUMADIN ^BOOTS^ [Concomitant]
  3. PERIDEX [Concomitant]
  4. CLONAZEPAM [Concomitant]
  5. GLIPIZIDE [Concomitant]
  6. HYDROCHLOROTHIAZIDE [Concomitant]
  7. METOPROLOL [Concomitant]
  8. ACTOS [Concomitant]
  9. REVLIMID [Concomitant]
  10. SIMVASTATIN [Concomitant]
  11. OMEPRAZOLE [Concomitant]
  12. LORAZEPAM [Concomitant]
     Dosage: 50 MG, UNK
  13. LEXAPRO [Concomitant]
     Dosage: 10 MG, QD
  14. DEPO-MEDROL [Concomitant]
  15. LIDOCAINE [Concomitant]
  16. CYMBALTA [Concomitant]
  17. MELPHALAN [Concomitant]
  18. DECADRON [Concomitant]
  19. VELCADE [Concomitant]
  20. NEURONTIN [Concomitant]
  21. PROCRIT [Concomitant]
  22. LYRICA [Concomitant]
  23. DOXYCYCLINE HYCLATE [Concomitant]

REACTIONS (132)
  - Pulmonary embolism [Unknown]
  - Type 2 diabetes mellitus [Unknown]
  - Deep vein thrombosis [Unknown]
  - Osteonecrosis of jaw [Unknown]
  - General physical health deterioration [Unknown]
  - Pain [Recovering/Resolving]
  - Paraesthesia [Recovering/Resolving]
  - Anxiety [Unknown]
  - Decreased interest [Unknown]
  - Exposed bone in jaw [Unknown]
  - Sinus tachycardia [Unknown]
  - Nephrolithiasis [Recovered/Resolved]
  - Panic attack [Unknown]
  - Osteolysis [Unknown]
  - Infection [Unknown]
  - Soft tissue disorder [Unknown]
  - Anaemia [Unknown]
  - Osteoporosis [Unknown]
  - Back pain [Unknown]
  - Neuropathy peripheral [Recovering/Resolving]
  - Hypoaesthesia [Unknown]
  - Spinal osteoarthritis [Unknown]
  - Flank pain [Unknown]
  - Blood cholesterol increased [Unknown]
  - Haematuria [Unknown]
  - Sepsis [Unknown]
  - Hypovolaemia [Unknown]
  - Chest pain [Unknown]
  - Facet joint syndrome [Unknown]
  - Intervertebral disc degeneration [Unknown]
  - Monoclonal gammopathy [Unknown]
  - Psoriasis [Unknown]
  - Gingivitis [Unknown]
  - Obesity [Unknown]
  - Renal failure chronic [Unknown]
  - Haemoptysis [Recovered/Resolved]
  - Pain in jaw [Not Recovered/Not Resolved]
  - Hydronephrosis [Unknown]
  - Calculus bladder [Unknown]
  - Gout [Unknown]
  - Oesophagitis [Unknown]
  - Melaena [Unknown]
  - Conjunctival haemorrhage [Unknown]
  - Rectal haemorrhage [Unknown]
  - Haematochezia [Unknown]
  - Renal colic [Unknown]
  - Cellulitis [Unknown]
  - Chronic hepatitis C [Unknown]
  - Obstructive airways disorder [Unknown]
  - Dyspnoea [Unknown]
  - Embolism venous [Unknown]
  - Anorectal disorder [Unknown]
  - Benign anorectal neoplasm [Unknown]
  - Diverticulum intestinal [Unknown]
  - Gastrointestinal disorder [Unknown]
  - Gastrointestinal haemorrhage [Unknown]
  - Petechiae [Unknown]
  - Pain in extremity [Recovering/Resolving]
  - Exostosis [Unknown]
  - Fatigue [Unknown]
  - Dry eye [Unknown]
  - Dry mouth [Unknown]
  - Muscle spasms [Unknown]
  - Constipation [Unknown]
  - Dyspepsia [Unknown]
  - Diarrhoea [Recovered/Resolved]
  - Myalgia [Recovered/Resolved]
  - Balance disorder [Recovered/Resolved]
  - Tinnitus [Unknown]
  - Decreased appetite [Unknown]
  - Abdominal pain [Unknown]
  - Hypokalaemia [Unknown]
  - Gastrooesophageal reflux disease [Unknown]
  - Pancreatic calcification [Unknown]
  - Pancytopenia [Unknown]
  - Bone loss [Unknown]
  - Oral cavity fistula [Unknown]
  - Fistula discharge [Unknown]
  - Impaired healing [Unknown]
  - Malignant melanoma [Unknown]
  - B-cell lymphoma [Unknown]
  - Pulmonary mass [Unknown]
  - Bone swelling [Unknown]
  - Lung disorder [Unknown]
  - Sinus bradycardia [Unknown]
  - Mass [Unknown]
  - Lymphoma [Unknown]
  - Second primary malignancy [Unknown]
  - Venous thrombosis [Unknown]
  - Lung infiltration [Unknown]
  - Pulmonary fibrosis [Unknown]
  - Adrenal disorder [Unknown]
  - Adenoma benign [Unknown]
  - Hiatus hernia [Unknown]
  - Skin swelling [Unknown]
  - Peripheral swelling [Unknown]
  - Joint swelling [Unknown]
  - Tenderness [Unknown]
  - Swelling [Unknown]
  - Osteoarthritis [Unknown]
  - Cholelithiasis [Unknown]
  - Nodule [Unknown]
  - Blister [Unknown]
  - Conjunctival cyst [Unknown]
  - Gait disturbance [Unknown]
  - Lacrimation increased [Unknown]
  - Visual impairment [Unknown]
  - Chalazion [Unknown]
  - Keratitis [Unknown]
  - Cataract [Unknown]
  - Thrombocytopenia [Unknown]
  - Aortic calcification [Unknown]
  - Hyperplasia [Unknown]
  - Musculoskeletal chest pain [Unknown]
  - Gastric mucosa erythema [Unknown]
  - Chronic gastritis [Unknown]
  - Irritable bowel syndrome [Unknown]
  - Kyphosis [Unknown]
  - Hydromyelia [Unknown]
  - Adrenal mass [Unknown]
  - Bone fissure [Unknown]
  - Spondylolisthesis [Unknown]
  - Muscle strain [Unknown]
  - Spinal cord compression [Unknown]
  - Intervertebral disc protrusion [Unknown]
  - Vertebral foraminal stenosis [Unknown]
  - Nocturia [Unknown]
  - Astigmatism [Unknown]
  - Blindness [Unknown]
  - Vision blurred [Unknown]
  - Blood glucose decreased [Unknown]
  - Eye inflammation [Unknown]
